FAERS Safety Report 6369076-9 (Version None)
Quarter: 2009Q3

REPORT INFORMATION
  Report Type: 
  Country: None (occurrence: None)
  Receive Date: 20090922
  Receipt Date: 20090911
  Transmission Date: 20100115
  Serious: Yes (Hospitalization, Other)
  Sender: FDA-Public Use
  Company Number: PHMT2007CA01366

PATIENT
  Sex: Female

DRUGS (6)
  1. SANDOSTATIN LAR [Suspect]
     Indication: PANCREATIC CARCINOMA
     Dosage: 30 MG, EVERY 3 WEEKS
     Route: 030
     Dates: start: 20050101
  2. SANDOSTATIN LAR [Suspect]
     Indication: CHRONIC HEPATITIS
  3. FENTANYL [Concomitant]
  4. STATEX [Concomitant]
     Indication: PAIN
  5. STEROIDS NOS [Concomitant]
  6. GRACOR [Concomitant]

REACTIONS (19)
  - ABASIA [None]
  - ABDOMINAL PAIN UPPER [None]
  - ANXIETY [None]
  - ASTHENIA [None]
  - BACK PAIN [None]
  - BIOPSY PANCREAS [None]
  - CONDITION AGGRAVATED [None]
  - DIARRHOEA [None]
  - EATING DISORDER [None]
  - HEADACHE [None]
  - INSOMNIA [None]
  - MAMMOGRAM ABNORMAL [None]
  - NAUSEA [None]
  - PAIN [None]
  - PANCREATIC CARCINOMA RECURRENT [None]
  - PANCREATIC DISORDER [None]
  - PANCREATITIS [None]
  - THROMBOSIS [None]
  - VOMITING [None]
